FAERS Safety Report 9690929 (Version 1)
Quarter: 2013Q4

REPORT INFORMATION
  Report Type: Spontaneous
  Country: NL (occurrence: NL)
  Receive Date: 20131115
  Receipt Date: 20131115
  Transmission Date: 20140711
  Serious: Yes (Other)
  Sender: FDA-Public Use
  Company Number: NL-PFIZER INC-2013323093

PATIENT
  Age: 62 Year
  Sex: Male
  Weight: 78 kg

DRUGS (5)
  1. LATANOPROST [Suspect]
     Indication: GLAUCOMA
     Dosage: 1 GTT, 1X/DAY
     Dates: start: 201211, end: 20131018
  2. ATORVASTATIN CALCIUM [Concomitant]
     Dosage: 20 MG, 1X/DAY
     Dates: start: 2009
  3. EZETROL [Concomitant]
     Dosage: 10 MG, 1X/DAY
     Dates: start: 1995
  4. LANSOPRAZOL [Concomitant]
     Dosage: 15 MG, 1X/DAY
     Dates: start: 2000
  5. IRBESARTAN [Concomitant]
     Dosage: 150 MG, 1X/DAY
     Dates: start: 2010

REACTIONS (3)
  - Dyspnoea [Not Recovered/Not Resolved]
  - Bronchial disorder [Not Recovered/Not Resolved]
  - Chest pain [Not Recovered/Not Resolved]
